FAERS Safety Report 17876066 (Version 1)
Quarter: 2020Q2

REPORT INFORMATION
  Report Type: Report from Study
  Country: CA (occurrence: CA)
  Receive Date: 20200609
  Receipt Date: 20200609
  Transmission Date: 20200714
  Serious: Yes (Other)
  Sender: FDA-Public Use
  Company Number: CA-PFIZER INC-2020221417

PATIENT
  Age: 63 Year
  Sex: Male

DRUGS (5)
  1. METHOTREXATE SODIUM. [Suspect]
     Active Substance: METHOTREXATE SODIUM
     Dosage: UNK
     Route: 058
  2. METOPROLOL. [Suspect]
     Active Substance: METOPROLOL
     Indication: ARRHYTHMIA
     Route: 065
  3. ATORVASTATIN [Concomitant]
     Active Substance: ATORVASTATIN
     Route: 065
  4. METHOTREXATE SODIUM. [Suspect]
     Active Substance: METHOTREXATE SODIUM
     Route: 048
  5. NAPROXEN. [Concomitant]
     Active Substance: NAPROXEN
     Route: 065

REACTIONS (14)
  - Off label use [Unknown]
  - Joint swelling [Unknown]
  - Product use issue [Unknown]
  - Drug intolerance [Unknown]
  - Dysstasia [Unknown]
  - Gait disturbance [Unknown]
  - Nail injury [Unknown]
  - General physical health deterioration [Unknown]
  - Arthritis [Unknown]
  - Nail psoriasis [Unknown]
  - Synovitis [Unknown]
  - C-reactive protein increased [Unknown]
  - Pain [Unknown]
  - Skin erosion [Unknown]
